FAERS Safety Report 8294807-0 (Version None)
Quarter: 2012Q2

REPORT INFORMATION
  Report Type: 
  Country: None (occurrence: None)
  Receive Date: 20120418
  Receipt Date: 20120403
  Transmission Date: 20120825
  Serious: Yes (Disabling)
  Sender: FDA-Public Use
  Company Number: PHHO2012DE005895

PATIENT
  Sex: Female
  Weight: 93 kg

DRUGS (10)
  1. ALISKIREN [Suspect]
     Indication: CARDIAC FAILURE
     Dosage: UNK
     Route: 048
     Dates: start: 20100413
  2. POLYHEXANIDE [Concomitant]
     Indication: PROPHYLAXIS
     Dosage: UNK
     Dates: start: 20110527
  3. DIPYRONE TAB [Concomitant]
     Indication: POLYNEUROPATHY
     Dosage: UNK
     Dates: start: 20100301
  4. PANTOPRAZOLE [Concomitant]
     Indication: PROPHYLAXIS
     Dosage: UNK
     Dates: start: 20100824
  5. FLUTICASONE PROPIONATE/SALMETEROL [Concomitant]
     Indication: CHRONIC OBSTRUCTIVE PULMONARY DISEASE
     Dosage: UNK
     Dates: start: 20100301
  6. METOCLOPRAMIDE [Concomitant]
     Indication: GASTROENTERITIS
     Dosage: UNK
     Dates: start: 20101129
  7. ENALAPRIL MALEATE [Suspect]
     Indication: CARDIAC FAILURE
     Dosage: UNK
     Route: 048
     Dates: start: 20100413
  8. LYRICA [Concomitant]
     Indication: CARDIAC FAILURE CONGESTIVE
     Dosage: 1 TBI
     Dates: start: 20050101
  9. SPIRIVA [Concomitant]
     Indication: CHRONIC OBSTRUCTIVE PULMONARY DISEASE
     Dosage: 18 UG, UNK
     Dates: start: 20100301
  10. THIAMAZOLE [Concomitant]
     Indication: CORNEAL PIGMENTATION
     Dosage: 20 MG, UNK
     Dates: start: 20110629

REACTIONS (1)
  - HEMIPARESIS [None]
